FAERS Safety Report 5275285-2 (Version None)
Quarter: 2007Q1

REPORT INFORMATION
  Report Type: 
  Country: None (occurrence: None)
  Receive Date: 20070326
  Receipt Date: 20070315
  Transmission Date: 20070707
  Serious: Yes (Hospitalization)
  Sender: FDA-Public Use
  Company Number: US-AVENTIS-200712299GDDC

PATIENT
  Age: 71 Year
  Sex: Female
  Weight: 43 kg

DRUGS (4)
  1. TAXOTERE [Suspect]
     Route: 042
     Dates: start: 20070305, end: 20070305
  2. FLUOROURACIL [Suspect]
     Route: 042
     Dates: start: 20070304, end: 20070309
  3. HYDROXYUREA [Suspect]
     Route: 048
     Dates: start: 20070304, end: 20070309
  4. RADIATION THERAPY [Suspect]
     Dosage: DOSE: UNK

REACTIONS (4)
  - DIARRHOEA [None]
  - HYPOKALAEMIA [None]
  - NAUSEA [None]
  - VOMITING [None]
